FAERS Safety Report 10636086 (Version 1)
Quarter: 2014Q4

REPORT INFORMATION
  Report Type: Spontaneous
  Country: FR (occurrence: FR)
  Receive Date: 20141205
  Receipt Date: 20141205
  Transmission Date: 20150529
  Serious: Yes (Hospitalization)
  Sender: FDA-Public Use
  Company Number: FR-ASTRAZENECA-2014SE92041

PATIENT
  Age: 709 Month
  Sex: Male
  Weight: 80 kg

DRUGS (10)
  1. CADUET [Concomitant]
     Active Substance: AMLODIPINE BESYLATE\ATORVASTATIN CALCIUM
     Dosage: 5/10
  2. CALCIDOSE D3 [Concomitant]
  3. TENORMIN [Concomitant]
     Active Substance: ATENOLOL
  4. KALEORID [Concomitant]
     Active Substance: POTASSIUM CHLORIDE
     Dates: end: 20141009
  5. UN-ALFA [Concomitant]
  6. DUOPLAVIN [Concomitant]
     Active Substance: ASPIRIN\CLOPIDOGREL
  7. IMOVANE [Concomitant]
     Active Substance: ZOPICLONE
  8. INEXIUM [Suspect]
     Active Substance: ESOMEPRAZOLE
     Indication: GASTRITIS
     Route: 048
     Dates: start: 201307, end: 20141010
  9. ARESTAL [Concomitant]
     Active Substance: LOPERAMIDE OXIDE
  10. VASTEN [Concomitant]
     Active Substance: PRAVASTATIN SODIUM

REACTIONS (4)
  - Hypokalaemia [Recovered/Resolved]
  - Diarrhoea [Unknown]
  - Hypocalcaemia [Recovered/Resolved]
  - Hypomagnesaemia [Recovered/Resolved]

NARRATIVE: CASE EVENT DATE: 201308
